FAERS Safety Report 5270829-9 (Version None)
Quarter: 2007Q1

REPORT INFORMATION
  Report Type: 
  Country: None (occurrence: None)
  Receive Date: 20070319
  Receipt Date: 20070319
  Transmission Date: 20070707
  Serious: Yes (Hospitalization)
  Sender: FDA-Public Use
  Company Number: None

PATIENT
  Sex: Male
  Weight: 83.9154 kg

DRUGS (12)
  1. PENTOSTATIN [Suspect]
     Indication: CHRONIC LYMPHOCYTIC LEUKAEMIA
     Dosage: 8MG X1 IV BOLUS
     Route: 040
     Dates: start: 20070219, end: 20070219
  2. CYTOXAN [Concomitant]
  3. RITUXAN [Concomitant]
  4. PALONOSETRON [Concomitant]
  5. COUMADIN [Concomitant]
  6. LISINOPRIL [Concomitant]
  7. OXYCONTIN [Concomitant]
  8. BACTRIM [Concomitant]
  9. FAMVIR [Concomitant]
  10. FLUCONAZOLE [Concomitant]
  11. FUROSEMIDE [Concomitant]
  12. METOLAZONE [Concomitant]

REACTIONS (5)
  - DIALYSIS [None]
  - DYSPNOEA [None]
  - HYPOPHOSPHATAEMIA [None]
  - RENAL FAILURE [None]
  - THROMBOTIC MICROANGIOPATHY [None]
